FAERS Safety Report 16222588 (Version 1)
Quarter: 2019Q2

REPORT INFORMATION
  Report Type: Spontaneous
  Country: US (occurrence: US)
  Receive Date: 20190419
  Receipt Date: 20190419
  Transmission Date: 20190711
  Serious: Yes (Hospitalization)
  Sender: FDA-Public Use
  Company Number: None

PATIENT
  Age: 37 Year
  Sex: Female

DRUGS (2)
  1. MAKENA [Suspect]
     Active Substance: HYDROXYPROGESTERONE CAPROATE
     Indication: PREMATURE LABOUR
     Dosage: ?          OTHER FREQUENCY:QW;?
     Route: 058
     Dates: start: 20190308
  2. NOT REPORTED [Concomitant]

REACTIONS (3)
  - Premature delivery [None]
  - Death neonatal [None]
  - Treatment failure [None]

NARRATIVE: CASE EVENT DATE: 20190417
